FAERS Safety Report 4354693-8 (Version None)
Quarter: 2004Q2

REPORT INFORMATION
  Report Type: 
  Country: None (occurrence: None)
  Receive Date: 20040503
  Receipt Date: 20040420
  Transmission Date: 20050107
  Serious: Yes (Disabling)
  Sender: FDA-Public Use
  Company Number: HQWYE550507APR03

PATIENT
  Age: 53 Year
  Sex: Male

DRUGS (1)
  1. DIMETAPP [Suspect]
     Dosage: ORAL
     Route: 048
     Dates: start: 20040306

REACTIONS (1)
  - CEREBROVASCULAR ACCIDENT [None]
